FAERS Safety Report 8152737 (Version 4)
Quarter: 2013Q2

REPORT INFORMATION
  Report Type: Spontaneous
  Country: US (occurrence: US)
  Receive Date: 20110922
  Receipt Date: 20130616
  Transmission Date: 20140414
  Serious: No
  Sender: FDA-Public Use
  Company Number: US-B.I. PHARMACEUTICALS,INC./RIDGEFIELD-2011-BP-22059BP

PATIENT
  Age: 78 Year
  Sex: Male
  Weight: 102.06 kg

DRUGS (14)
  1. PRADAXA [Suspect]
     Indication: ATRIAL FIBRILLATION
     Dosage: 300 MG
     Route: 048
     Dates: start: 20110822
  2. MURO 128 [Concomitant]
     Indication: CATARACT OPERATION
     Dates: start: 20110728
  3. PREDNISONE [Concomitant]
     Indication: CATARACT OPERATION
     Dates: start: 20110728
  4. COMBIGAN [Concomitant]
     Indication: GLAUCOMA
     Dates: start: 2010
  5. FISH OIL [Concomitant]
  6. VIT C [Concomitant]
  7. VIT E [Concomitant]
  8. VIT D [Concomitant]
  9. CALCIUM [Concomitant]
  10. MAGNESIUM [Concomitant]
  11. GLUCOSAMINE [Concomitant]
  12. ZINC [Concomitant]
  13. B-COMPLEX [Concomitant]
  14. MULTIVITAMIN [Concomitant]

REACTIONS (6)
  - Gout [Recovered/Resolved]
  - Diarrhoea [Not Recovered/Not Resolved]
  - Haemorrhoidal haemorrhage [Not Recovered/Not Resolved]
  - Urine odour abnormal [Not Recovered/Not Resolved]
  - Haemorrhoidal haemorrhage [Not Recovered/Not Resolved]
  - Constipation [Recovered/Resolved]
